FAERS Safety Report 20769824 (Version 1)
Quarter: 2022Q2

REPORT INFORMATION
  Report Type: Spontaneous
  Country: US (occurrence: US)
  Receive Date: 20220429
  Receipt Date: 20220429
  Transmission Date: 20220721
  Serious: Yes (Other)
  Sender: FDA-Public Use
  Company Number: US-VERTEX PHARMACEUTICALS-2022-004662

PATIENT
  Age: 47 Year
  Sex: Male

DRUGS (21)
  1. TRIKAFTA [Suspect]
     Active Substance: ELEXACAFTOR\IVACAFTOR\TEZACAFTOR
     Indication: Cystic fibrosis
     Dosage: 2 ORANGE TABLETS AM;1 BLUE TABLET PM
     Route: 048
     Dates: start: 2020
  2. CALCIUM CITRATE [Concomitant]
     Active Substance: CALCIUM CITRATE
  3. MIRALAX [Concomitant]
     Active Substance: POLYETHYLENE GLYCOL 3350
  4. VITAMIN D3 [Concomitant]
     Active Substance: CHOLECALCIFEROL
  5. HYDROXYCHLOROQUINE SULFATE [Concomitant]
     Active Substance: HYDROXYCHLOROQUINE SULFATE
  6. CAYSTON [Concomitant]
     Active Substance: AZTREONAM
  7. CLOPIDOGREL [Concomitant]
     Active Substance: CLOPIDOGREL BISULFATE
  8. LISINOPRIL [Concomitant]
     Active Substance: LISINOPRIL
  9. ATORVASTATIN CALCIUM [Concomitant]
     Active Substance: ATORVASTATIN CALCIUM
  10. NITROGLYCERIN [Concomitant]
     Active Substance: NITROGLYCERIN
  11. METOPROLOL SUCCINATE [Concomitant]
     Active Substance: METOPROLOL SUCCINATE
  12. HUMALOG [Concomitant]
     Active Substance: INSULIN LISPRO
  13. ASPIRIN [Concomitant]
     Active Substance: ASPIRIN
  14. ARIKAYCE [Concomitant]
     Active Substance: AMIKACIN
  15. PREVIDENT [Concomitant]
     Active Substance: SODIUM FLUORIDE
  16. SODIUM FLUORIDE [Concomitant]
     Active Substance: SODIUM FLUORIDE
  17. ALBUTEROL SULFATE [Concomitant]
     Active Substance: ALBUTEROL SULFATE
  18. URSODIOL [Concomitant]
     Active Substance: URSODIOL
  19. LINEZOLID [Concomitant]
     Active Substance: LINEZOLID
  20. CREON [Concomitant]
     Active Substance: PANCRELIPASE AMYLASE\PANCRELIPASE LIPASE\PANCRELIPASE PROTEASE
  21. TUMS [Concomitant]
     Active Substance: CALCIUM CARBONATE

REACTIONS (3)
  - Coronary artery occlusion [Unknown]
  - Myocardial infarction [Unknown]
  - Feeling abnormal [Not Recovered/Not Resolved]

NARRATIVE: CASE EVENT DATE: 20220304
